FAERS Safety Report 4881502-0 (Version None)
Quarter: 2005Q4

REPORT INFORMATION
  Report Type: 
  Country: None (occurrence: None)
  Receive Date: 20051201
  Receipt Date: 20050728
  Transmission Date: 20060501
  Serious: No
  Sender: FDA-Public Use
  Company Number: 2005PV000658

PATIENT
  Age: 61 Year
  Sex: Female
  Weight: 129.7287 kg

DRUGS (10)
  1. BYETTA [Suspect]
     Indication: DIABETES MELLITUS NON-INSULIN-DEPENDENT
     Dosage: 5 MCG;BID;SC
     Route: 058
     Dates: start: 20050722
  2. GLUCOPHAGE [Concomitant]
  3. GLUCOTROL [Concomitant]
  4. VYTORIN [Concomitant]
  5. WELLBUTRIN [Concomitant]
  6. CYMBALTA [Concomitant]
  7. PIROXICAM [Concomitant]
  8. LISINOPRIL [Concomitant]
  9. ASPIRIN [Concomitant]
  10. TYLENOL [Concomitant]

REACTIONS (7)
  - BLOOD GLUCOSE DECREASED [None]
  - DECREASED APPETITE [None]
  - FEELING JITTERY [None]
  - HYPERHIDROSIS [None]
  - NAUSEA [None]
  - RETCHING [None]
  - WEIGHT DECREASED [None]
